FAERS Safety Report 19647165 (Version 1)
Quarter: 2021Q3

REPORT INFORMATION
  Report Type: Spontaneous
  Country: TR (occurrence: TR)
  Receive Date: 20210802
  Receipt Date: 20210802
  Transmission Date: 20211014
  Serious: Yes (Hospitalization, Other)
  Sender: FDA-Public Use
  Company Number: TR-PFIZER INC-202100952062

PATIENT
  Age: 19 Year
  Sex: Female

DRUGS (4)
  1. FAVIPIRAVIR [Interacting]
     Active Substance: FAVIPIRAVIR
     Indication: PNEUMONIA VIRAL
     Dosage: LOADING DOSE OF 2X1600MG ON THE 1ST DAY
     Dates: start: 20210122, end: 20210122
  2. FOLINIC ACID [Concomitant]
     Active Substance: LEUCOVORIN
     Dosage: UNK
  3. FAVIPIRAVIR [Interacting]
     Active Substance: FAVIPIRAVIR
     Dosage: 2 X 600 MG ON THE 2ND DAY
     Dates: start: 20210123, end: 20210123
  4. METHOTREXATE SODIUM. [Suspect]
     Active Substance: METHOTREXATE SODIUM
     Indication: OSTEOSARCOMA
     Dosage: HIGH?DOSE (8 GR/M2, TWO?WEEKLY)

REACTIONS (3)
  - Drug interaction [Recovered/Resolved]
  - Drug level increased [Recovered/Resolved]
  - Drug-induced liver injury [Recovered/Resolved]
